FAERS Safety Report 20207132 (Version 1)
Quarter: 2021Q4

REPORT INFORMATION
  Report Type: Spontaneous
  Country: US (occurrence: None)
  Receive Date: 20211218
  Receipt Date: 20211218
  Transmission Date: 20220303
  Serious: Yes (Hospitalization)
  Sender: FDA-Public Use
  Company Number: None

PATIENT
  Sex: Male
  Weight: 62.6 kg

DRUGS (5)
  1. CARBOPLATIN [Suspect]
     Active Substance: CARBOPLATIN
  2. ETOPOSIDE [Suspect]
     Active Substance: ETOPOSIDE
  3. IFOSFAMIDE [Suspect]
     Active Substance: IFOSFAMIDE
  4. TAXOL [Suspect]
     Active Substance: PACLITAXEL
  5. NEULASTA [Suspect]
     Active Substance: PEGFILGRASTIM

REACTIONS (2)
  - Malaise [None]
  - Febrile neutropenia [None]

NARRATIVE: CASE EVENT DATE: 20191206
